FAERS Safety Report 6707931-8 (Version None)
Quarter: 2010Q2

REPORT INFORMATION
  Report Type: 
  Country: None (occurrence: None)
  Receive Date: 20100428
  Receipt Date: 20100413
  Transmission Date: 20101027
  Serious: Yes (Hospitalization)
  Sender: FDA-Public Use
  Company Number: 2010001372

PATIENT
  Age: 50 Year
  Sex: Male

DRUGS (11)
  1. ERLOTINIB        (ERLOTINIB) (TABLET) (ERLOTINIB) [Suspect]
     Indication: PANCREATIC CARCINOMA METASTATIC
     Dosage: 150 MG, QD, ORAL
     Route: 048
     Dates: start: 20100222
  2. DRUG VEHICLE NOS [Suspect]
     Indication: PANCREATIC CARCINOMA METASTATIC
     Dosage: 1875 MG, INTRAVENOUS
     Route: 042
     Dates: start: 20100222
  3. ARIXTRA [Concomitant]
  4. CELEXA [Concomitant]
  5. METHADONE HCL [Concomitant]
  6. MEGAVITAMIN [Concomitant]
  7. NEURONTIN [Concomitant]
  8. PANCRELIPASE (PANCRELIPASE) [Concomitant]
  9. SENNA (SENNA) [Concomitant]
  10. HYDROCORTONE [Concomitant]
  11. OXYGEN (OXYGEN) [Concomitant]

REACTIONS (2)
  - HYPOXIA [None]
  - RESPIRATORY DISTRESS [None]
